FAERS Safety Report 9986287 (Version 1)
Quarter: 2014Q1

REPORT INFORMATION
  Report Type: Report from Study
  Country: US (occurrence: US)
  Receive Date: 20140307
  Receipt Date: 20140307
  Transmission Date: 20141002
  Serious: No
  Sender: FDA-Public Use
  Company Number: US-ABBVIE-13P-163-1087997-00

PATIENT
  Age: 58 Year
  Sex: Female

DRUGS (18)
  1. HUMIRA [Suspect]
     Indication: RHEUMATOID ARTHRITIS
     Dates: start: 20130423, end: 20130508
  2. METFORMIN [Concomitant]
     Indication: DIABETES MELLITUS
  3. GLIMEPIRIDE [Concomitant]
     Indication: DIABETES MELLITUS
  4. SYNTHROID [Concomitant]
     Indication: HYPOTHYROIDISM
  5. AMLODIPINE [Concomitant]
     Indication: HYPERTENSION
  6. LASIX [Concomitant]
     Indication: PRODUCT USED FOR UNKNOWN INDICATION
  7. IBUPROFEN [Concomitant]
     Indication: PAIN
  8. PRAMIPEXOLE [Concomitant]
     Indication: RESTLESS LEGS SYNDROME
     Dosage: AT BEDTIME
  9. HUMALOG [Concomitant]
     Indication: PRODUCT USED FOR UNKNOWN INDICATION
     Dosage: 50/50 MIX, BEFORE BREAKFAST
  10. INSULIN [Concomitant]
     Indication: PRODUCT USED FOR UNKNOWN INDICATION
     Dosage: BEFORE DINNER
  11. NOVOLOG [Concomitant]
     Indication: PRODUCT USED FOR UNKNOWN INDICATION
     Dosage: SLIDING SCALE
  12. BENAZEPRIL [Concomitant]
     Indication: HYPERTENSION
  13. GABAPENTIN [Concomitant]
     Indication: PAIN IN EXTREMITY
  14. GABAPENTIN [Concomitant]
     Indication: PAIN IN EXTREMITY
  15. CYMBALTA [Concomitant]
     Indication: PAIN
  16. CYMBALTA [Concomitant]
     Indication: DEPRESSION
  17. CELEBREX [Concomitant]
     Indication: ARTHRALGIA
  18. CPAP [Concomitant]
     Indication: SLEEP APNOEA SYNDROME

REACTIONS (3)
  - Dizziness [Recovered/Resolved]
  - Injection site pain [Recovering/Resolving]
  - Injection site pruritus [Recovering/Resolving]
